FAERS Safety Report 5704552-0 (Version None)
Quarter: 2008Q2

REPORT INFORMATION
  Report Type: 
  Country: None (occurrence: None)
  Receive Date: 20080414
  Receipt Date: 20080403
  Transmission Date: 20081010
  Serious: Yes (Death, Hospitalization)
  Sender: FDA-Public Use
  Company Number: HR-ROCHE-556918

PATIENT
  Age: 81 Year
  Sex: Male

DRUGS (1)
  1. XELODA [Suspect]
     Route: 048
     Dates: start: 20080201

REACTIONS (5)
  - DEATH [None]
  - DEHYDRATION [None]
  - FLUSHING [None]
  - NEUTROPENIA [None]
  - PYREXIA [None]
